FAERS Safety Report 16507224 (Version 9)
Quarter: 2020Q2

REPORT INFORMATION
  Report Type: Spontaneous
  Country: US (occurrence: US)
  Receive Date: 20190701
  Receipt Date: 20200520
  Transmission Date: 20200713
  Serious: Yes (Other)
  Sender: FDA-Public Use
  Company Number: US-PFIZER INC-2019170312

PATIENT
  Age: 45 Year
  Sex: Female

DRUGS (2)
  1. LYRICA [Suspect]
     Active Substance: PREGABALIN
     Dosage: 75 MG, 2X/DAY (ONE IN THE MORNING AND ONE AT NIGHT)
  2. LYRICA [Suspect]
     Active Substance: PREGABALIN
     Indication: FIBROMYALGIA
     Dosage: 75 MG, 4X/DAY
     Route: 048

REACTIONS (12)
  - Intentional product use issue [Unknown]
  - Oropharyngeal pain [Unknown]
  - Loss of consciousness [Unknown]
  - Drug withdrawal syndrome [Unknown]
  - Headache [Unknown]
  - Hallucination [Unknown]
  - Nasopharyngitis [Unknown]
  - Malaise [Unknown]
  - Feeling abnormal [Unknown]
  - Eye infection [Unknown]
  - Confusional state [Unknown]
  - Influenza [Unknown]
